FAERS Safety Report 6599788-3 (Version None)
Quarter: 2010Q1

REPORT INFORMATION
  Report Type: 
  Country: None (occurrence: None)
  Receive Date: 20100224
  Receipt Date: 20100218
  Transmission Date: 20100710
  Serious: Yes (Death, Other)
  Sender: FDA-Public Use
  Company Number: PHHY2010NZ10295

PATIENT
  Age: 59 Year
  Sex: Male

DRUGS (3)
  1. CYCLOSPORINE [Suspect]
     Indication: RENAL TRANSPLANT
     Dosage: 150 MG DAILY
  2. AZATHIOPRINE [Suspect]
     Indication: RENAL TRANSPLANT
     Dosage: 75 MG, UNK
     Route: 048
  3. PREDNISONE [Suspect]
     Indication: RENAL TRANSPLANT
     Dosage: 10 MG, UNK

REACTIONS (20)
  - BASAL CELL CARCINOMA [None]
  - CARDIAC NEOPLASM UNSPECIFIED [None]
  - HEAD AND NECK CANCER [None]
  - HEADACHE [None]
  - HEPATIC NEOPLASM MALIGNANT [None]
  - INTRACARDIAC MASS [None]
  - KIDNEY TRANSPLANT REJECTION [None]
  - LETHARGY [None]
  - LUNG SQUAMOUS CELL CARCINOMA STAGE UNSPECIFIED [None]
  - MALIGNANT TUMOUR EXCISION [None]
  - METASTASES TO KIDNEY [None]
  - METASTASES TO PERITONEUM [None]
  - METASTASES TO PLEURA [None]
  - METASTATIC SQUAMOUS CELL CARCINOMA [None]
  - PULMONARY EMBOLISM [None]
  - PYREXIA [None]
  - SEPSIS [None]
  - SKIN LESION [None]
  - SQUAMOUS CELL CARCINOMA OF SKIN [None]
  - THYROID CANCER [None]
